FAERS Safety Report 6344411-6 (Version None)
Quarter: 2009Q3

REPORT INFORMATION
  Report Type: 
  Country: None (occurrence: None)
  Receive Date: 20090908
  Receipt Date: 20090828
  Transmission Date: 20100115
  Serious: Yes (Other)
  Sender: FDA-Public Use
  Company Number: PHHY2009JP36932

PATIENT
  Age: 65 Year
  Sex: Male

DRUGS (2)
  1. ZOMETA [Suspect]
     Indication: METASTASES TO BONE
     Dosage: 4 MG/DAY
     Route: 042
     Dates: start: 20090817
  2. ODYNE [Concomitant]
     Route: 048

REACTIONS (5)
  - BLOOD ALKALINE PHOSPHATASE INCREASED [None]
  - HYPOAESTHESIA [None]
  - HYPOCALCAEMIA [None]
  - PROSTATIC SPECIFIC ANTIGEN INCREASED [None]
  - TETANY [None]
